FAERS Safety Report 8930637 (Version 1)
Quarter: 2012Q4

REPORT INFORMATION
  Report Type: 
  Country: US (occurrence: US)
  Receive Date: 20121128
  Receipt Date: 20121128
  Transmission Date: 20130627
  Serious: Yes (Other)
  Sender: FDA-Public Use
  Company Number: US-BRISTOL-MYERS SQUIBB COMPANY-17141920

PATIENT
  Age: 83 Year
  Sex: Male

DRUGS (1)
  1. ORENCIA [Suspect]
     Dosage: last inf:20oct12,interrupted in May12,restarted in Jul12
     Route: 042
     Dates: start: 201202

REACTIONS (2)
  - Arthropathy [Unknown]
  - Pain in extremity [Unknown]
